FAERS Safety Report 5734329-1 (Version None)
Quarter: 2008Q2

REPORT INFORMATION
  Report Type: 
  Country: None (occurrence: None)
  Receive Date: 20080507
  Receipt Date: 20080324
  Transmission Date: 20081010
  Serious: No
  Sender: FDA-Public Use
  Company Number: ADE# 08-040

PATIENT
  Age: 17 Year
  Sex: Female

DRUGS (3)
  1. CETIRIZINE HYDROCHLORIDE [Suspect]
     Indication: ASTHMA
     Dosage: 10 MG DAILY
     Dates: start: 20080301
  2. CETIRIZINE HYDROCHLORIDE [Suspect]
     Indication: HYPERSENSITIVITY
     Dosage: 10 MG DAILY
     Dates: start: 20080301
  3. ASTHMA MEDICATION [Concomitant]

REACTIONS (1)
  - DRUG INEFFECTIVE [None]
